FAERS Safety Report 4816210-5 (Version None)
Quarter: 2005Q4

REPORT INFORMATION
  Report Type: 
  Country: None (occurrence: None)
  Receive Date: 20051028
  Receipt Date: 20051011
  Transmission Date: 20060501
  Serious: Yes (Hospitalization)
  Sender: FDA-Public Use
  Company Number: 218885

PATIENT
  Age: 44 Year
  Sex: Female

DRUGS (7)
  1. HERCEPTIN [Suspect]
     Indication: BREAST CANCER METASTATIC
     Dosage: 4 MG/KG, 1/WEEK, INTRAVENOUS
     Route: 042
     Dates: start: 20050711, end: 20050711
  2. CAPECITABINE (CAPECITABINE) [Suspect]
     Indication: BREAST CANCER METASTATIC
     Dosage: 1000 MG/MG2, BID, ORAL
     Route: 048
     Dates: start: 20050711, end: 20050803
  3. VINORELBINE TARTRATE [Suspect]
     Indication: BREAST CANCER METASTATIC
     Dosage: 60 MG/M2, DAY 1+8/Q3W, ORAL
     Route: 048
     Dates: start: 20050711, end: 20050801
  4. ZOLPIDEM TARTRATE [Concomitant]
  5. BROMAZEPAM (BROMAZEPAM) [Concomitant]
  6. TRAMADOL HCL [Concomitant]
  7. ZOLEDRONIC ACID (ZOLEDRONIC ACID) [Concomitant]

REACTIONS (4)
  - ECG SIGNS OF MYOCARDIAL ISCHAEMIA [None]
  - MYOCARDITIS [None]
  - SINUS TACHYCARDIA [None]
  - VENTRICULAR HYPOKINESIA [None]
